FAERS Safety Report 15611773 (Version 1)
Quarter: 2018Q4

REPORT INFORMATION
  Report Type: Spontaneous
  Country: AU (occurrence: AU)
  Receive Date: 20181113
  Receipt Date: 20181113
  Transmission Date: 20190205
  Serious: Yes (Other)
  Sender: FDA-Public Use
  Company Number: AU-ASTRAZENECA-2018SF48601

PATIENT
  Age: 80 Year
  Sex: Female

DRUGS (3)
  1. FLUVOXAMINE [Concomitant]
     Active Substance: FLUVOXAMINE
     Indication: DEPRESSION
  2. OLANZAPINE. [Concomitant]
     Active Substance: OLANZAPINE
     Dosage: SLOWLY TITRATED UPWARDS,
  3. QUETIAPINE. [Suspect]
     Active Substance: QUETIAPINE
     Indication: DEPRESSION
     Route: 048

REACTIONS (1)
  - Pulmonary embolism [Recovered/Resolved]
